FAERS Safety Report 6584176-6 (Version None)
Quarter: 2010Q1

REPORT INFORMATION
  Report Type: 
  Country: None (occurrence: None)
  Receive Date: 20100216
  Receipt Date: 20100208
  Transmission Date: 20100710
  Serious: Yes (Other)
  Sender: FDA-Public Use
  Company Number: US-JNJFOC-20060204993

PATIENT
  Sex: Male
  Weight: 102.51 kg

DRUGS (6)
  1. RISPERDAL [Suspect]
     Indication: PANIC DISORDER
     Route: 065
  2. RISPERDAL [Suspect]
     Indication: DEPRESSION
     Route: 065
  3. ZYPREXA [Suspect]
     Indication: ANXIETY
  4. ZYPREXA [Suspect]
     Indication: DEPRESSION
  5. SEROQUEL [Suspect]
     Indication: PANIC ATTACK
     Route: 065
  6. SEROQUEL [Suspect]
     Indication: SLEEP DISORDER
     Route: 065

REACTIONS (8)
  - AKATHISIA [None]
  - DIABETES MELLITUS [None]
  - DIABETIC NEUROPATHY [None]
  - GASTROOESOPHAGEAL REFLUX DISEASE [None]
  - IMPAIRED GASTRIC EMPTYING [None]
  - KNEE DEFORMITY [None]
  - OSTEOARTHRITIS [None]
  - WEIGHT INCREASED [None]
